FAERS Safety Report 5641558-4 (Version None)
Quarter: 2008Q1

REPORT INFORMATION
  Report Type: 
  Country: None (occurrence: None)
  Receive Date: 20080227
  Receipt Date: 20071105
  Transmission Date: 20080703
  Serious: No
  Sender: FDA-Public Use
  Company Number: A0691399A

PATIENT
  Age: 44 Year
  Sex: Male

DRUGS (1)
  1. TARGET ORIGINAL 2MG [Suspect]
     Dates: start: 20071027, end: 20071031

REACTIONS (1)
  - NAUSEA [None]
